FAERS Safety Report 17859307 (Version 1)
Quarter: 2020Q2

REPORT INFORMATION
  Report Type: Spontaneous
  Country: KR (occurrence: KR)
  Receive Date: 20200604
  Receipt Date: 20200604
  Transmission Date: 20200714
  Serious: Yes (Hospitalization, Other)
  Sender: FDA-Public Use
  Company Number: KR-009507513-2006KOR001020

PATIENT
  Sex: Female

DRUGS (2)
  1. LENVATINIB MESYLATE [Suspect]
     Active Substance: LENVATINIB MESYLATE
     Indication: CLEAR CELL ENDOMETRIAL CARCINOMA
     Dosage: UNK
     Route: 048
  2. PEMBROLIZUMAB. [Suspect]
     Active Substance: PEMBROLIZUMAB
     Indication: CLEAR CELL ENDOMETRIAL CARCINOMA
     Dosage: UNK

REACTIONS (2)
  - N-terminal prohormone brain natriuretic peptide increased [Unknown]
  - Cardiomyopathy [Not Recovered/Not Resolved]
